FAERS Safety Report 9663565 (Version 1)
Quarter: 2013Q4

REPORT INFORMATION
  Report Type: Spontaneous
  Country: US (occurrence: US)
  Receive Date: 20131101
  Receipt Date: 20131101
  Transmission Date: 20140711
  Serious: No
  Sender: FDA-Public Use
  Company Number: US-ENDO PHARMACEUTICALS INC.-CLOZ20130006

PATIENT
  Age: 57 Year
  Sex: Female
  Weight: 48.12 kg

DRUGS (1)
  1. CLONAZEPAM 0.5MG [Suspect]
     Indication: INSOMNIA
     Route: 048
     Dates: start: 201301

REACTIONS (1)
  - Abdominal pain [Not Recovered/Not Resolved]
